FAERS Safety Report 19468190 (Version 1)
Quarter: 2021Q2

REPORT INFORMATION
  Report Type: Spontaneous
  Country: US (occurrence: US)
  Receive Date: 20210628
  Receipt Date: 20210628
  Transmission Date: 20210717
  Serious: Yes (Other)
  Sender: FDA-Public Use
  Company Number: US-PFIZER INC-2021687628

PATIENT
  Age: 6 Decade
  Sex: Female

DRUGS (1)
  1. INOTUZUMAB OZOGAMICIN [Suspect]
     Active Substance: INOTUZUMAB OZOGAMICIN
     Indication: B PRECURSOR TYPE ACUTE LEUKAEMIA
     Dosage: 1.8 MG/M2, CYCLIC [1 CYCLE OF INOTUZUMAB PER LABEL ( TOTAL OF 1.8 MG/M2)]

REACTIONS (1)
  - Venoocclusive disease [Not Recovered/Not Resolved]
